FAERS Safety Report 9506301 (Version 1)
Quarter: 2013Q1

REPORT INFORMATION
  Report Type: Spontaneous
  Country: US (occurrence: None)
  Receive Date: 20130301
  Receipt Date: 20130301
  Transmission Date: 20140127
  Serious: Yes (Other)
  Sender: FDA-Public Use
  Company Number: RB-39962-2012

PATIENT
  Sex: 0

DRUGS (1)
  1. SUBOXONE [Suspect]
     Indication: ACCIDENTAL EXPOSURE TO PRODUCT BY CHILD
     Dosage: CHILD ^SPIT TABLET OUT^ DID NOT SWALLOW TABLET)
     Route: 048
     Dates: start: 201204, end: 201204

REACTIONS (2)
  - Accidental exposure to product by child [None]
  - No adverse event [None]
